FAERS Safety Report 22280326 (Version 1)
Quarter: 2023Q2

REPORT INFORMATION
  Report Type: Report from Study
  Country: US (occurrence: US)
  Receive Date: 20230503
  Receipt Date: 20230503
  Transmission Date: 20230721
  Serious: Yes (Other)
  Sender: FDA-Public Use
  Company Number: US-002147023-NVSC2023US096976

PATIENT
  Sex: Female
  Weight: 52.62 kg

DRUGS (11)
  1. CLOBETASOL [Suspect]
     Active Substance: CLOBETASOL
     Indication: Psoriasis
     Dosage: 0.05 %
     Route: 061
  2. CLOBETASOL [Suspect]
     Active Substance: CLOBETASOL
     Indication: Psoriasis
     Dosage: 0.05 %
     Route: 061
  3. ESTRADIOL [Suspect]
     Active Substance: ESTRADIOL
     Indication: Psoriasis
     Dosage: UNK
     Route: 065
  4. CALCIPOTRIENE [Suspect]
     Active Substance: CALCIPOTRIENE
     Indication: Psoriasis
     Dosage: 0.005 %
     Route: 061
  5. IBUPROFEN [Suspect]
     Active Substance: IBUPROFEN
     Indication: Psoriasis
     Dosage: 200 MG
     Route: 048
  6. SPIRONOLACTONE [Suspect]
     Active Substance: SPIRONOLACTONE
     Indication: Psoriasis
     Dosage: 100 MG
     Route: 048
  7. TIZANIDINE [Suspect]
     Active Substance: TIZANIDINE
     Indication: Psoriasis
     Dosage: 4 MG
     Route: 048
  8. VITAMIN C [Suspect]
     Active Substance: ASCORBIC ACID
     Indication: Psoriasis
     Dosage: UNK
     Route: 065
  9. EPINEPHRINE\LIDOCAINE HYDROCHLORIDE [Suspect]
     Active Substance: EPINEPHRINE\LIDOCAINE HYDROCHLORIDE
     Indication: Psoriasis
     Dosage: 1 %
     Route: 065
  10. OTEZLA [Suspect]
     Active Substance: APREMILAST
     Indication: Product used for unknown indication
     Dosage: UNK
     Route: 065
  11. SORIATANE [Suspect]
     Active Substance: ACITRETIN
     Indication: Product used for unknown indication
     Dosage: UNK
     Route: 065

REACTIONS (5)
  - Dermoid cyst [Unknown]
  - Lip disorder [Unknown]
  - Psoriasis [Unknown]
  - Product use in unapproved indication [Unknown]
  - Drug ineffective [Unknown]
